FAERS Safety Report 11298383 (Version 1)
Quarter: 2015Q3

REPORT INFORMATION
  Report Type: Spontaneous
  Country: US (occurrence: US)
  Receive Date: 20150722
  Receipt Date: 20150722
  Transmission Date: 20151125
  Serious: No
  Sender: FDA-Public Use
  Company Number: US-ELI_LILLY_AND_COMPANY-US201109007973

PATIENT
  Sex: Female

DRUGS (5)
  1. VITAMIN B12 [Concomitant]
     Active Substance: CYANOCOBALAMIN
  2. CALCIUM [Concomitant]
     Active Substance: CALCIUM
  3. PHENELZINE [Concomitant]
     Active Substance: PHENELZINE
  4. VITAMIN D [Concomitant]
     Active Substance: CHOLECALCIFEROL
  5. EVISTA [Suspect]
     Active Substance: RALOXIFENE HYDROCHLORIDE
     Indication: OSTEOPOROSIS
     Dosage: 60 MG, QD
     Dates: start: 201010, end: 20110915

REACTIONS (9)
  - Road traffic accident [Recovered/Resolved]
  - Vision blurred [Unknown]
  - Intentional product misuse [Unknown]
  - Musculoskeletal pain [Unknown]
  - Pain [Unknown]
  - Visual acuity reduced [Recovering/Resolving]
  - Rib fracture [Recovering/Resolving]
  - Night blindness [Unknown]
  - Haematoma [Unknown]

NARRATIVE: CASE EVENT DATE: 20110725
